FAERS Safety Report 18715166 (Version 1)
Quarter: 2021Q1

REPORT INFORMATION
  Report Type: Spontaneous
  Country: US (occurrence: US)
  Receive Date: 20210108
  Receipt Date: 20210108
  Transmission Date: 20210419
  Serious: No
  Sender: FDA-Public Use
  Company Number: US-ELI_LILLY_AND_COMPANY-US202012004421

PATIENT
  Sex: Female

DRUGS (1)
  1. HUMULIN R U?500 [Suspect]
     Active Substance: INSULIN HUMAN
     Indication: BLOOD GLUCOSE INCREASED
     Dosage: 100 U, TID
     Route: 065

REACTIONS (2)
  - Product dose omission issue [Unknown]
  - Blood glucose increased [Unknown]
